FAERS Safety Report 7202759-7 (Version None)
Quarter: 2010Q4

REPORT INFORMATION
  Report Type: 
  Country: None (occurrence: None)
  Receive Date: 20101229
  Receipt Date: 20101222
  Transmission Date: 20110411
  Serious: Yes (Life-Threatening, Hospitalization)
  Sender: FDA-Public Use
  Company Number: JP-BAXTER-2010BH030337

PATIENT
  Age: 15 Year
  Sex: Female

DRUGS (8)
  1. HOLOXAN BAXTER [Suspect]
     Indication: BONE SARCOMA
     Route: 042
     Dates: start: 20101206, end: 20101208
  2. UROMITEXAN BAXTER [Suspect]
     Indication: BONE SARCOMA
     Route: 042
     Dates: start: 20101206, end: 20101208
  3. LASTET [Suspect]
     Indication: BONE SARCOMA
     Route: 042
     Dates: start: 20101206, end: 20101208
  4. ANNACA [Concomitant]
     Indication: BONE SARCOMA
     Route: 042
     Dates: start: 20101206, end: 20101209
  5. DIAMOX FOR INJECTION [Concomitant]
     Indication: BONE SARCOMA
     Route: 042
     Dates: start: 20101206, end: 20101208
  6. PRIDOL [Concomitant]
     Indication: BONE SARCOMA
     Route: 042
     Dates: start: 20101206, end: 20101209
  7. RAMELTEON [Concomitant]
     Indication: BONE SARCOMA
     Route: 042
     Dates: start: 20101206, end: 20101209
  8. DEXAMETHASONE SODIUM PHOSPHATE [Concomitant]
     Indication: BONE SARCOMA
     Route: 042
     Dates: start: 20101206, end: 20101209

REACTIONS (2)
  - ENCEPHALOPATHY [None]
  - RENAL FAILURE ACUTE [None]
